FAERS Safety Report 5335648-3 (Version None)
Quarter: 2007Q2

REPORT INFORMATION
  Report Type: 
  Country: None (occurrence: None)
  Receive Date: 20070322
  Receipt Date: 20061207
  Transmission Date: 20071010
  Serious: No
  Sender: FDA-Public Use
  Company Number: 2006US002837

PATIENT
  Age: 48 Year
  Sex: Male

DRUGS (2)
  1. VESICARE [Suspect]
     Indication: HYPERTONIC BLADDER
     Dosage: SEE IMAGE
     Route: 048
     Dates: start: 20051201
  2. CORTISPORIN (HYDROCORTISONE ACETATE) [Concomitant]

REACTIONS (5)
  - DRY MOUTH [None]
  - HYPOAESTHESIA [None]
  - MUSCLE SPASMS [None]
  - PARAESTHESIA [None]
  - SCIATICA [None]
